FAERS Safety Report 7671387-1 (Version None)
Quarter: 2011Q3

REPORT INFORMATION
  Report Type: 
  Country: None (occurrence: None)
  Receive Date: 20110725
  Receipt Date: 20110711
  Transmission Date: 20111222
  Serious: Yes (Hospitalization)
  Sender: FDA-Public Use
  Company Number: 2011029154

PATIENT
  Age: 48 Year
  Sex: Male

DRUGS (7)
  1. PRIVIGEN [Suspect]
     Indication: ACUTE POLYNEUROPATHY
     Dosage: 100 G TOTAL, 30 G/DAY FOR THE FIRST TWO DAYS, 40 G FOR THE THIRD DAY, INTRAVENOUS
     Route: 042
     Dates: start: 20110617, end: 20110619
  2. GLYBURIDE [Concomitant]
  3. GLUCOPHAGE [Concomitant]
  4. LOVENOX [Concomitant]
  5. NICARDIPINE HYDROCHLORIDE [Concomitant]
  6. METHYLPREDNISOLONE [Concomitant]
  7. ACETAMINOPHEN [Concomitant]

REACTIONS (4)
  - HYPOTENSION [None]
  - BLOOD CULTURE POSITIVE [None]
  - KLEBSIELLA INFECTION [None]
  - CHILLS [None]
